FAERS Safety Report 15663668 (Version 3)
Quarter: 2019Q1

REPORT INFORMATION
  Report Type: Report from Study
  Country: PL (occurrence: PL)
  Receive Date: 20181128
  Receipt Date: 20190326
  Transmission Date: 20190417
  Serious: Yes (Hospitalization)
  Sender: FDA-Public Use
  Company Number: PL-ROCHE-2219921

PATIENT
  Age: 83 Year
  Sex: Male
  Weight: 67 kg

DRUGS (15)
  1. ULTRACOD [Concomitant]
     Route: 048
     Dates: start: 20180628
  2. EUTHYROX [Concomitant]
     Active Substance: LEVOTHYROXINE SODIUM
     Route: 048
     Dates: start: 20180920
  3. ATEZOLIZUMAB. [Suspect]
     Active Substance: ATEZOLIZUMAB
     Indication: HORMONE-REFRACTORY PROSTATE CANCER
     Dosage: ON DAY 1 OF EACH 21-DAY CYCLE?DATE OF MOST RECENT DOSE: 30/AUG/2018.
     Route: 042
     Dates: start: 20180426
  4. MONONIT [Concomitant]
     Route: 048
     Dates: start: 201710
  5. CYCLONAMINE [Concomitant]
     Active Substance: ETHAMSYLATE
     Route: 048
     Dates: start: 201710
  6. HELICID [Concomitant]
     Active Substance: OMEPRAZOLE
     Route: 048
     Dates: start: 201710
  7. NAPROXEN. [Concomitant]
     Active Substance: NAPROXEN
     Route: 048
     Dates: start: 20180517
  8. ENCORTON [Concomitant]
     Active Substance: PREDNISONE
     Route: 048
     Dates: start: 20180920, end: 20181011
  9. PYRALGIN (POLAND) [Concomitant]
     Route: 048
     Dates: start: 201710
  10. SPIRONOL [Concomitant]
     Active Substance: SPIRONOLACTONE
     Route: 048
     Dates: start: 201710
  11. ENCORTON [Concomitant]
     Active Substance: PREDNISONE
     Route: 048
     Dates: start: 20181012
  12. OMNIC OCAS [Concomitant]
     Active Substance: TAMSULOSIN HYDROCHLORIDE
     Route: 048
     Dates: start: 201710
  13. ENZALUTAMIDE [Suspect]
     Active Substance: ENZALUTAMIDE
     Indication: HORMONE-REFRACTORY PROSTATE CANCER
     Dosage: DATE OF MOST RECENT DOSE: 14/NOV/2018.
     Route: 048
     Dates: start: 20180426
  14. DIAPREL MR [Concomitant]
     Active Substance: GLICLAZIDE
     Route: 048
     Dates: start: 201710
  15. CALCIUM CHLORATE [Concomitant]
     Route: 042
     Dates: start: 20181123, end: 20181126

REACTIONS (1)
  - IIIrd nerve paralysis [Not Recovered/Not Resolved]

NARRATIVE: CASE EVENT DATE: 20181114
